FAERS Safety Report 4666365-0 (Version None)
Quarter: 2005Q2

REPORT INFORMATION
  Report Type: 
  Country: None (occurrence: None)
  Receive Date: 20050518
  Receipt Date: 20050509
  Transmission Date: 20051028
  Serious: Yes (Other)
  Sender: FDA-Public Use
  Company Number: 2005072483

PATIENT
  Age: 54 Year
  Sex: Female
  Weight: 74.8435 kg

DRUGS (10)
  1. TIKOSYN [Suspect]
     Indication: ATRIAL FIBRILLATION
     Dosage: SEE IMAGE
     Route: 048
     Dates: start: 20050501, end: 20050502
  2. TIKOSYN [Suspect]
     Indication: ATRIAL FIBRILLATION
     Dosage: SEE IMAGE
     Route: 048
     Dates: start: 20050502
  3. ATENOLOL [Concomitant]
  4. LIPITOR [Concomitant]
  5. DETROL [Concomitant]
  6. SYNTHROID [Concomitant]
  7. CELEXA [Concomitant]
  8. FLEXERIL [Concomitant]
  9. COUMADIN [Concomitant]
  10. FLEICAINIDE (FLEICAINIDE) [Concomitant]

REACTIONS (2)
  - BLOOD URINE PRESENT [None]
  - ELECTROCARDIOGRAM QT PROLONGED [None]
